FAERS Safety Report 9959054 (Version 8)
Quarter: 2015Q3

REPORT INFORMATION
  Report Type: Spontaneous
  Country: US (occurrence: None)
  Receive Date: 20140227
  Receipt Date: 20150901
  Transmission Date: 20151125
  Serious: Yes (Hospitalization)
  Sender: FDA-Public Use
  Company Number: DSU-2014-00354

PATIENT
  Age: 51 Year
  Sex: Male
  Weight: 72.1 kg

DRUGS (6)
  1. NORVASC [Concomitant]
     Active Substance: AMLODIPINE BESYLATE
  2. ZOCOR [Concomitant]
     Active Substance: SIMVASTATIN
  3. TOPROL XL (METOPOROLOL SUCCINATE) [Concomitant]
  4. BENICAR HCT [Suspect]
     Active Substance: HYDROCHLOROTHIAZIDE\OLMESARTAN MEDOXOMIL
     Indication: HYPERTENSION
     Dosage: 40/25 MG
     Route: 048
     Dates: start: 201102, end: 201212
  5. BENICAR [Suspect]
     Active Substance: OLMESARTAN MEDOXOMIL
     Indication: HYPERTENSION
     Route: 048
     Dates: start: 20120309, end: 20120720
  6. AVALIDE (HYDROCHLOROTHIAZIDE, IRBESARTAN) [Concomitant]

REACTIONS (37)
  - Acute kidney injury [None]
  - Ill-defined disorder [None]
  - Head injury [None]
  - Vomiting [None]
  - Malnutrition [None]
  - Loss of consciousness [None]
  - Colitis microscopic [None]
  - Eosinophilic oesophagitis [None]
  - Syncope [None]
  - Haemoconcentration [None]
  - Renal tubular necrosis [None]
  - Thrombocytosis [None]
  - Hypokalaemia [None]
  - Hypocalcaemia [None]
  - Nephropathy toxic [None]
  - Anaemia [None]
  - Metabolic acidosis [None]
  - Coeliac disease [None]
  - Cold sweat [None]
  - Dehydration [None]
  - Haematemesis [None]
  - Headache [None]
  - Haematuria [None]
  - Infectious colitis [None]
  - Hyponatraemia [None]
  - Hypovolaemic shock [None]
  - Neck pain [None]
  - Weight decreased [None]
  - Haemorrhoids [None]
  - Leukocytosis [None]
  - Malabsorption [None]
  - Oral candidiasis [None]
  - Occult blood positive [None]
  - Gout [None]
  - Irritable bowel syndrome [None]
  - Tremor [None]
  - Hypotension [None]

NARRATIVE: CASE EVENT DATE: 20040811
